FAERS Safety Report 4516131-1 (Version None)
Quarter: 2004Q4

REPORT INFORMATION
  Report Type: 
  Country: None (occurrence: None)
  Receive Date: 20041129
  Receipt Date: 20041109
  Transmission Date: 20050328
  Serious: Yes (Other)
  Sender: FDA-Public Use
  Company Number: WAES 0411GBR00101

PATIENT
  Age: 51 Year
  Sex: Male
  Weight: 95.709 kg

DRUGS (1)
  1. VYTORIN [Suspect]
     Indication: AORTIC STENOSIS
     Dosage: 10/40 MG/DAILY/PO
     Route: 048
     Dates: start: 20031111

REACTIONS (11)
  - AMAUROSIS FUGAX [None]
  - AREFLEXIA [None]
  - BODY TEMPERATURE DECREASED [None]
  - CARDIAC MURMUR [None]
  - HEADACHE [None]
  - HEMIPARESIS [None]
  - MIGRAINE [None]
  - PARAESTHESIA [None]
  - TRANSIENT ISCHAEMIC ATTACK [None]
  - VENTRICULAR HYPERTROPHY [None]
  - VISION BLURRED [None]
